FAERS Safety Report 18275897 (Version 1)
Quarter: 2020Q3

REPORT INFORMATION
  Report Type: Spontaneous
  Country: JP (occurrence: JP)
  Receive Date: 20200916
  Receipt Date: 20200916
  Transmission Date: 20201103
  Serious: Yes (Hospitalization)
  Sender: FDA-Public Use
  Company Number: JP-ROCHE-2677369

PATIENT
  Age: 56 Year
  Sex: Female
  Weight: 45 kg

DRUGS (17)
  1. AVASTIN [Suspect]
     Active Substance: BEVACIZUMAB
     Indication: BREAST CANCER
     Route: 041
     Dates: start: 20151022, end: 20151022
  2. AVASTIN [Suspect]
     Active Substance: BEVACIZUMAB
     Route: 041
     Dates: start: 20160606
  3. AVASTIN [Suspect]
     Active Substance: BEVACIZUMAB
     Route: 041
     Dates: start: 20180305
  4. FASLODEX [Concomitant]
     Active Substance: FULVESTRANT
     Indication: BREAST CANCER
     Route: 065
     Dates: start: 20171002, end: 20180207
  5. ISODINE (JAPAN) [Concomitant]
     Route: 003
  6. ENDOXAN [Concomitant]
     Active Substance: CYCLOPHOSPHAMIDE
     Indication: BREAST CANCER
     Route: 041
     Dates: start: 20161207, end: 20170911
  7. EPIRUBICIN HYDROCHLORIDE. [Suspect]
     Active Substance: EPIRUBICIN HYDROCHLORIDE
     Indication: BREAST CANCER
     Dosage: MOST RECENT DOSE OF EPIRUBICIN HYDROCHLORIDE WAS RECEIVED ON 11/SEP/2017.
     Route: 041
     Dates: start: 20161207
  8. TAXOL [Concomitant]
     Active Substance: PACLITAXEL
     Route: 041
     Dates: start: 20160606, end: 2016
  9. KADCYLA [Suspect]
     Active Substance: ADO-TRASTUZUMAB EMTANSINE
     Indication: BREAST CANCER
     Dosage: MOST RECENT DOSE OF TRASTUZUMAB EMTANSINE WAS RECEIVED IN //2016
     Route: 041
     Dates: start: 20160506, end: 2016
  10. TEPRENONE [Concomitant]
     Active Substance: TEPRENONE
     Route: 048
  11. PERJETA [Suspect]
     Active Substance: PERTUZUMAB
     Indication: BREAST CANCER
     Dosage: STRENGTH: 420MG/14ML.?MOST RECENT DOSE OF PERTUZUMAB WAS RECEIVED ON 18/APR/2016.
     Route: 041
     Dates: start: 20151027, end: 20160418
  12. HERCEPTIN [Suspect]
     Active Substance: TRASTUZUMAB
     Indication: BREAST CANCER
     Dosage: MOST RECENT DOSE OF TRASTUZUMAB WAS RECEIVED ON 18/APR/2016.
     Route: 041
     Dates: start: 20151027
  13. TAXOL [Concomitant]
     Active Substance: PACLITAXEL
     Indication: BREAST CANCER
     Route: 041
     Dates: start: 20151022, end: 20151022
  14. TAXOL [Concomitant]
     Active Substance: PACLITAXEL
     Route: 041
     Dates: start: 20151027, end: 20160201
  15. TAXOL [Concomitant]
     Active Substance: PACLITAXEL
     Route: 041
     Dates: start: 20180305
  16. FLUOROURACIL. [Concomitant]
     Active Substance: FLUOROURACIL
     Indication: BREAST CANCER
     Route: 041
     Dates: start: 20161207, end: 20170911
  17. LOXOPROFEN NA [Concomitant]
     Active Substance: LOXOPROFEN SODIUM
     Route: 048

REACTIONS (8)
  - Insomnia [Unknown]
  - Cough [Unknown]
  - Cardiomyopathy [Recovered/Resolved]
  - Anaemia [Unknown]
  - Blood pressure increased [Unknown]
  - Pleural effusion [Unknown]
  - Therapy non-responder [Unknown]
  - Constipation [Unknown]

NARRATIVE: CASE EVENT DATE: 20160606
